FAERS Safety Report 6195780-1 (Version None)
Quarter: 2009Q2

REPORT INFORMATION
  Report Type: 
  Country: None (occurrence: None)
  Receive Date: 20090520
  Receipt Date: 20080320
  Transmission Date: 20091009
  Serious: Yes (Hospitalization, Other)
  Sender: FDA-Public Use
  Company Number: US-ASTRAZENECA-2007UW25099

PATIENT
  Age: 18126 Day
  Sex: Male

DRUGS (15)
  1. SEROQUEL [Suspect]
     Indication: BIPOLAR DISORDER
     Dosage: 100 - 200 MG
     Route: 048
     Dates: start: 20041130
  2. SEROQUEL [Suspect]
     Dosage: 100MG-200MG
     Route: 048
     Dates: start: 20040401, end: 20070601
  3. LANTUS [Concomitant]
     Indication: GLUCOSE TOLERANCE TEST ABNORMAL
     Dates: start: 20071018
  4. AMARYL [Concomitant]
     Route: 048
  5. WELLBUTRIN [Concomitant]
     Route: 048
  6. LIPITOR [Concomitant]
     Indication: HYPERLIPIDAEMIA
  7. LITHIUM [Concomitant]
     Route: 048
  8. ASPIRIN [Concomitant]
     Route: 048
  9. VALPROIC ACID [Concomitant]
  10. DEPAKOTE [Concomitant]
     Route: 048
  11. AVANDIA [Concomitant]
     Route: 048
  12. VYTORIN [Concomitant]
     Dosage: 10/14
     Route: 048
  13. BUPROPION HCL [Concomitant]
     Route: 048
  14. LISINOPRIL [Concomitant]
     Route: 048
  15. NICOTINE PATCHES [Concomitant]
     Route: 023

REACTIONS (10)
  - BURSITIS [None]
  - CHEST PAIN [None]
  - DIABETES MELLITUS [None]
  - EXOSTOSIS [None]
  - GLUCOSE TOLERANCE TEST ABNORMAL [None]
  - HYPERLIPIDAEMIA [None]
  - HYPERTENSION [None]
  - SUPRAVENTRICULAR TACHYCARDIA [None]
  - TACHYARRHYTHMIA [None]
  - TINEA PEDIS [None]
